FAERS Safety Report 6529153-6 (Version None)
Quarter: 2010Q1

REPORT INFORMATION
  Report Type: 
  Country: None (occurrence: None)
  Receive Date: 20100107
  Receipt Date: 20091230
  Transmission Date: 20100710
  Serious: Yes (Other)
  Sender: FDA-Public Use
  Company Number: US-CELGENEUS-163-21880-09122463

PATIENT
  Sex: Female

DRUGS (1)
  1. REVLIMID [Suspect]
     Indication: MULTIPLE MYELOMA
     Dosage: 15MG ON DAYS 1-20 AND 5MG ON DAYS 21-28
     Route: 048
     Dates: start: 20090417, end: 20091224

REACTIONS (1)
  - CHOLELITHIASIS [None]
